FAERS Safety Report 12481494 (Version 1)
Quarter: 2016Q2

REPORT INFORMATION
  Report Type: Spontaneous
  Country: US (occurrence: US)
  Receive Date: 20160620
  Receipt Date: 20160620
  Transmission Date: 20160815
  Serious: No
  Sender: FDA-Public Use
  Company Number: US-HERITAGE PHARMACEUTICALS-2016HTG00008

PATIENT
  Age: 30 Year
  Sex: Male

DRUGS (4)
  1. NAPROSYN [Suspect]
     Active Substance: NAPROXEN
  2. INDOMETHACIN. [Suspect]
     Active Substance: INDOMETHACIN
     Dosage: UNK
  3. RELAFEN [Suspect]
     Active Substance: NABUMETONE
  4. REMICADE [Suspect]
     Active Substance: INFLIXIMAB

REACTIONS (1)
  - Drug hypersensitivity [Unknown]

NARRATIVE: CASE EVENT DATE: 20140326
